FAERS Safety Report 19728668 (Version 1)
Quarter: 2021Q3

REPORT INFORMATION
  Report Type: Spontaneous
  Country: CN (occurrence: CN)
  Receive Date: 20210820
  Receipt Date: 20210820
  Transmission Date: 20211014
  Serious: Yes (Hospitalization)
  Sender: FDA-Public Use
  Company Number: CN-BAYER-2021-195376

PATIENT
  Age: 83 Year
  Sex: Male

DRUGS (1)
  1. GLUCOBAY [Suspect]
     Active Substance: ACARBOSE
     Indication: TYPE 2 DIABETES MELLITUS
     Dosage: 50 MG, TID
     Route: 048
     Dates: start: 20210218, end: 20210813

REACTIONS (6)
  - Hypoglycaemia [None]
  - Diabetes mellitus inadequate control [None]
  - Depressed level of consciousness [None]
  - Hypoglycaemic coma [None]
  - Anal incontinence [None]
  - Urinary incontinence [None]

NARRATIVE: CASE EVENT DATE: 2021
